FAERS Safety Report 5567915-2 (Version None)
Quarter: 2007Q4

REPORT INFORMATION
  Report Type: 
  Country: None (occurrence: None)
  Receive Date: 20071218
  Receipt Date: 20071218
  Transmission Date: 20080405
  Serious: No
  Sender: FDA-Public Use
  Company Number: None

PATIENT
  Age: 29 Year
  Sex: Male
  Weight: 90.7194 kg

DRUGS (3)
  1. LITHIUM CARBONATE [Suspect]
     Dosage: 600 BID PO
     Route: 048
  2. CLOZAPINE [Suspect]
     Dosage: 500MG BID PO
     Route: 048
  3. BENZTROPINE [Concomitant]

REACTIONS (5)
  - DEHYDRATION [None]
  - DIZZINESS [None]
  - FALL [None]
  - MYOCLONUS [None]
  - THERAPEUTIC AGENT TOXICITY [None]
